FAERS Safety Report 10092458 (Version 1)
Quarter: 2014Q2

REPORT INFORMATION
  Report Type: Spontaneous
  Country: US (occurrence: US)
  Receive Date: 20140421
  Receipt Date: 20140421
  Transmission Date: 20141212
  Serious: No
  Sender: FDA-Public Use
  Company Number: US-SANOFI-AVENTIS-2013SA039666

PATIENT
  Age: 90 Year
  Sex: Female

DRUGS (4)
  1. ALLEGRA 24 HOUR [Suspect]
     Indication: URTICARIA
     Route: 048
  2. ALLEGRA 24 HOUR [Suspect]
     Indication: ANTIALLERGIC THERAPY
     Route: 048
  3. ALLEGRA 24 HOUR [Suspect]
     Indication: URTICARIA
     Route: 048
     Dates: start: 2003
  4. ALLEGRA 24 HOUR [Suspect]
     Indication: ANTIALLERGIC THERAPY
     Route: 048
     Dates: start: 2003

REACTIONS (2)
  - Pruritus [Recovered/Resolved]
  - Urticaria [Recovered/Resolved]
